FAERS Safety Report 23488588 (Version 4)
Quarter: 2024Q2

REPORT INFORMATION
  Report Type: Spontaneous
  Country: US (occurrence: US)
  Receive Date: 20240206
  Receipt Date: 20240506
  Transmission Date: 20240716
  Serious: Yes (Other)
  Sender: FDA-Public Use
  Company Number: US-BRISTOL-MYERS SQUIBB COMPANY-2024-019553

PATIENT
  Age: 56 Year
  Sex: Female
  Weight: 49.9 kg

DRUGS (13)
  1. ZEPOSIA [Suspect]
     Active Substance: OZANIMOD HYDROCHLORIDE
     Indication: Multiple sclerosis
     Dosage: 1 TIME A DAY FOR 4 DAYS
     Route: 048
     Dates: start: 202401
  2. ZEPOSIA [Suspect]
     Active Substance: OZANIMOD HYDROCHLORIDE
     Dosage: 1 TIME A DAY FOR 3 DAY
     Route: 048
     Dates: start: 202401
  3. ZEPOSIA [Suspect]
     Active Substance: OZANIMOD HYDROCHLORIDE
     Route: 048
     Dates: start: 202401
  4. ZEPOSIA [Suspect]
     Active Substance: OZANIMOD HYDROCHLORIDE
     Route: 048
     Dates: start: 202401
  5. HYDROXYCHLOROQUINE DIPHOSPHATE [Suspect]
     Active Substance: HYDROXYCHLOROQUINE DIPHOSPHATE
     Indication: Product used for unknown indication
  6. TIZANIDINE [Concomitant]
     Active Substance: TIZANIDINE
     Indication: Product used for unknown indication
     Dosage: PILLS
  7. PREGABALIN [Concomitant]
     Active Substance: PREGABALIN
     Indication: Product used for unknown indication
     Dosage: PILLS
  8. ZENADINE [Concomitant]
     Indication: Product used for unknown indication
  9. MECLIZINE HYDROCHLORIDE [Concomitant]
     Active Substance: MECLIZINE HYDROCHLORIDE
     Indication: Product used for unknown indication
     Dosage: PILL
  10. MONTELUKAST [Concomitant]
     Active Substance: MONTELUKAST SODIUM
     Indication: Product used for unknown indication
  11. ADVAIR HFA [Concomitant]
     Active Substance: FLUTICASONE PROPIONATE\SALMETEROL XINAFOATE
     Indication: Product used for unknown indication
  12. ZONIXEM [Concomitant]
     Indication: Product used for unknown indication
  13. VITAMINS NOS [Concomitant]
     Active Substance: VITAMINS
     Indication: Product used for unknown indication

REACTIONS (13)
  - Fatigue [Unknown]
  - Multiple sclerosis relapse [Unknown]
  - Influenza [Unknown]
  - Abdominal discomfort [Unknown]
  - Skin ulcer [Unknown]
  - Bronchospasm [Unknown]
  - Flatulence [Unknown]
  - Illness [Unknown]
  - Systemic lupus erythematosus [Unknown]
  - Sinusitis [Recovered/Resolved]
  - Weight decreased [Unknown]
  - Intentional dose omission [Unknown]
  - Back pain [Unknown]

NARRATIVE: CASE EVENT DATE: 20240101
